FAERS Safety Report 14311882 (Version 1)
Quarter: 2017Q4

REPORT INFORMATION
  Report Type: Spontaneous
  Country: US (occurrence: US)
  Receive Date: 20171221
  Receipt Date: 20171221
  Transmission Date: 20180321
  Serious: Yes (Other)
  Sender: FDA-Public Use
  Company Number: US-DRREDDYS-USA/USA/17/0094870

PATIENT
  Age: 54 Year
  Sex: Male

DRUGS (12)
  1. ARIPIPRAZOLE. [Suspect]
     Active Substance: ARIPIPRAZOLE
     Route: 065
     Dates: start: 20150123
  2. BUPROPION. [Suspect]
     Active Substance: BUPROPION
     Indication: MAJOR DEPRESSION
     Route: 065
  3. LITHIUM. [Suspect]
     Active Substance: LITHIUM
     Indication: MAJOR DEPRESSION
     Dosage: AT NIGHT TIME
     Route: 065
  4. PHENELZINE [Suspect]
     Active Substance: PHENELZINE
     Route: 065
  5. PHENELZINE [Suspect]
     Active Substance: PHENELZINE
     Indication: MAJOR DEPRESSION
     Dosage: EVERY MORNING
     Route: 065
     Dates: start: 20150410
  6. QUETIAPINE FUMARATE TABLETS [Suspect]
     Active Substance: QUETIAPINE FUMARATE
     Route: 065
  7. QUETIAPINE FUMARATE TABLETS [Suspect]
     Active Substance: QUETIAPINE FUMARATE
     Indication: MAJOR DEPRESSION
     Dosage: UPTO 1200 MG
     Route: 065
  8. CLOMIPRAMINE [Suspect]
     Active Substance: CLOMIPRAMINE
     Indication: MAJOR DEPRESSION
     Route: 065
  9. ARIPIPRAZOLE. [Suspect]
     Active Substance: ARIPIPRAZOLE
     Route: 065
     Dates: start: 20150123
  10. QUETIAPINE FUMARATE TABLETS [Suspect]
     Active Substance: QUETIAPINE FUMARATE
     Dosage: EVERY NIGHT
     Route: 065
  11. BUSPIRONE [Suspect]
     Active Substance: BUSPIRONE HYDROCHLORIDE
     Indication: MAJOR DEPRESSION
     Route: 065
  12. ARIPIPRAZOLE. [Suspect]
     Active Substance: ARIPIPRAZOLE
     Indication: MAJOR DEPRESSION
     Dosage: LESS THAN 5 MG
     Route: 065
     Dates: start: 20150123

REACTIONS (5)
  - Drug ineffective [Unknown]
  - Poor personal hygiene [Unknown]
  - Decreased appetite [Unknown]
  - Asthenia [Unknown]
  - Orthostatic hypertension [Unknown]
